FAERS Safety Report 17926297 (Version 7)
Quarter: 2024Q3

REPORT INFORMATION
  Report Type: Spontaneous
  Country: US (occurrence: US)
  Receive Date: 20200623
  Receipt Date: 20240816
  Transmission Date: 20241017
  Serious: Yes (Death, Other)
  Sender: TEVA
  Company Number: US-TEVA-2020-US-1790497

PATIENT
  Age: 67 Year
  Sex: Female

DRUGS (42)
  1. IRBESARTAN [Suspect]
     Active Substance: IRBESARTAN
     Indication: Hypertension
     Route: 065
     Dates: start: 20141008, end: 20141107
  2. HYDROCHLOROTHIAZIDE\LOSARTAN [Suspect]
     Active Substance: HYDROCHLOROTHIAZIDE\LOSARTAN
     Indication: Hypertension
     Dosage: DOSAGE TEXT: 50-12.5 MG
     Route: 065
     Dates: start: 20160218, end: 20190519
  3. HYDROCHLOROTHIAZIDE\LOSARTAN [Suspect]
     Active Substance: HYDROCHLOROTHIAZIDE\LOSARTAN
     Indication: Hypertension
     Dosage: DOSAGE TEXT: 50-12.5 MG
     Route: 065
     Dates: start: 20160209, end: 20190127
  4. HYDROCHLOROTHIAZIDE\LOSARTAN POTASSIUM [Suspect]
     Active Substance: HYDROCHLOROTHIAZIDE\LOSARTAN POTASSIUM
     Indication: Hypertension
     Dosage: DOSAGE TEXT: 50-12.5 MG
     Route: 065
     Dates: start: 20190602, end: 20190831
  5. ORENCIA [Concomitant]
     Active Substance: ABATACEPT
     Indication: Arthritis
     Dosage: DOSAGE TEXT: 250MG INTRAVENOUS SOLUTION ONCE A MONTH
     Route: 042
     Dates: start: 2016, end: 2019
  6. METFORMIN HYDROCHLORIDE [Concomitant]
     Active Substance: METFORMIN HYDROCHLORIDE
     Indication: Diabetes mellitus
     Dates: start: 20090216, end: 2014
  7. GABAPENTIN [Concomitant]
     Active Substance: GABAPENTIN
     Indication: Product used for unknown indication
     Dosage: TIME INTERVAL: 0.333 DAYS
     Route: 048
  8. Humalog U-100 Insulin [Concomitant]
     Indication: Diabetes mellitus
     Dosage: DOSAGE TEXT: 100 UNIT/ML, AS DIRECTED
     Route: 058
  9. ACETAMINOPHEN\HYDROCODONE [Concomitant]
     Active Substance: ACETAMINOPHEN\HYDROCODONE
     Indication: Product used for unknown indication
     Dosage: TIME INTERVAL: 0.333 DAYS: DOSAGE TEXT: 7.5MG-325MG
     Route: 048
  10. LEVOTHYROXINE [Concomitant]
     Active Substance: LEVOTHYROXINE\LEVOTHYROXINE SODIUM
     Indication: Thyroid disorder
     Route: 048
  11. LEVOTHYROXINE [Concomitant]
     Active Substance: LEVOTHYROXINE\LEVOTHYROXINE SODIUM
     Indication: Thyroid disorder
     Dosage: DOSAGE TEXT: 112MCG, DO NOT REMEMBER FREQUENCY OF USE
     Dates: start: 20090325, end: 2019
  12. LEVOTHYROXINE [Concomitant]
     Active Substance: LEVOTHYROXINE\LEVOTHYROXINE SODIUM
     Indication: Thyroid disorder
     Dosage: DOSAGE TEXT: 150MCG, DO NOT REMEMBER FREQUENCY OF USE
     Dates: start: 20090325, end: 2019
  13. LIDOCAINE\PRILOCAINE [Concomitant]
     Active Substance: LIDOCAINE\PRILOCAINE
     Indication: Product used for unknown indication
     Dosage: DOSAGE TEXT: 2.5%-2.5%
     Route: 061
  14. METHOCARBAMOL [Concomitant]
     Active Substance: METHOCARBAMOL
     Indication: Muscle spasms
     Route: 048
  15. METHOCARBAMOL [Concomitant]
     Active Substance: METHOCARBAMOL
     Indication: Muscle spasms
     Dosage: DOSAGE TEXT: 500MG, DOES NOT REMEMBER THE FREQUENCY OF USE
     Dates: start: 20120625, end: 2019
  16. OXYBUTYNIN CHLORIDE [Concomitant]
     Active Substance: OXYBUTYNIN CHLORIDE
     Indication: Product used for unknown indication
     Dosage: TIME INTERVAL: 0.333 DAYS
     Route: 048
  17. PANTOPRAZOLE [Concomitant]
     Active Substance: PANTOPRAZOLE
     Indication: Product used for unknown indication
     Dosage: DOSAGE TEXT: DELAYED RELEASE
     Route: 048
  18. SULFASALAZINE [Concomitant]
     Active Substance: SULFASALAZINE
     Indication: Product used for unknown indication
     Dosage: DOSAGE TEXT: DELAYED RELEASE
     Route: 048
  19. VITAMIN D3 [Concomitant]
     Active Substance: CHOLECALCIFEROL
     Indication: Product used for unknown indication
     Dosage: DOSAGE TEXT: 1000 UNIT
     Route: 048
  20. CELEBREX [Concomitant]
     Active Substance: CELECOXIB
     Indication: Arthritis
     Dosage: DOSAGE TEXT: 200MG TWICE DAILY
     Dates: start: 20090101, end: 2012
  21. VITAMIN D2 [Concomitant]
     Active Substance: ERGOCALCIFEROL
     Indication: Prophylaxis
     Dosage: DOSAGE TEXT: 1.25MG (50,000 UNIT) TAKEN ONCE A WEEK
     Dates: start: 20120221, end: 2020
  22. FISH OIL [Concomitant]
     Active Substance: FISH OIL
     Indication: Prophylaxis
     Dosage: DOSAGE TEXT: 1000MG TAKEN EVERY DAY
     Dates: end: 2020
  23. APIDRA [Concomitant]
     Active Substance: INSULIN GLULISINE
     Indication: Diabetes mellitus
     Dosage: DOSAGE TEXT: 100 UNIT/ML, TAKEN DAILY AFTER EVERY MEAL
     Dates: start: 20090129, end: 2014
  24. MICARDIS HCT [Concomitant]
     Active Substance: HYDROCHLOROTHIAZIDE\TELMISARTAN
     Indication: Hypertension
     Dosage: DOSAGE TEXT: 80-25MG DAILY
     Dates: start: 20090120, end: 201312
  25. OMEPRAZOLE [Concomitant]
     Active Substance: OMEPRAZOLE
     Indication: Gastrooesophageal reflux disease
     Dosage: DOSAGE TEXT: 20MG DOES NOT REMEMBER THE FREQUENCY OF USE
     Dates: start: 20090115, end: 201411
  26. IRBESARTAN [Suspect]
     Active Substance: IRBESARTAN
     Indication: Hypertension
     Dosage: DOSAGE TEXT: IRBESARTAN SOLCO
     Route: 065
     Dates: start: 20140519, end: 20140618
  27. IRBESARTAN [Suspect]
     Active Substance: IRBESARTAN
     Indication: Hypertension
     Route: 065
     Dates: start: 20140908, end: 20141008
  28. IRBESARTAN [Suspect]
     Active Substance: IRBESARTAN
     Indication: Hypertension
     Route: 065
     Dates: start: 20140618, end: 20140911
  29. DITROPAN [Concomitant]
     Active Substance: OXYBUTYNIN CHLORIDE
     Indication: Product used for unknown indication
     Route: 048
     Dates: end: 20200820
  30. SYNTHROID [Concomitant]
     Active Substance: LEVOTHYROXINE SODIUM
     Indication: Product used for unknown indication
     Dosage: 150 MCG
     Route: 048
  31. NORCO [Concomitant]
     Active Substance: ACETAMINOPHEN\HYDROCODONE BITARTRATE
     Indication: Pain
     Dosage: 10/325 MG 1TAB Q4H PRN
     Route: 048
  32. HYZAAR [Concomitant]
     Active Substance: HYDROCHLOROTHIAZIDE\LOSARTAN POTASSIUM
     Indication: Product used for unknown indication
     Dosage: 50/12.5 MG 1TAB
     Route: 048
  33. LORCET HD [Concomitant]
     Active Substance: ACETAMINOPHEN\HYDROCODONE BITARTRATE
     Indication: Pain
     Dosage: 10-325 MG 1 TAB Q6H PRN
     Route: 048
  34. LASIX [Concomitant]
     Active Substance: FUROSEMIDE
     Indication: Product used for unknown indication
     Route: 048
  35. NEURONTIN [Concomitant]
     Active Substance: GABAPENTIN
     Indication: Product used for unknown indication
     Dosage: BED  TIME
     Route: 048
  36. NEURONTIN [Concomitant]
     Active Substance: GABAPENTIN
     Indication: Product used for unknown indication
     Route: 048
     Dates: end: 20200820
  37. DECADRON [Concomitant]
     Active Substance: DEXAMETHASONE
     Indication: Product used for unknown indication
     Route: 048
  38. COMPAZINE [Concomitant]
     Active Substance: PROCHLORPERAZINE MALEATE
     Indication: Product used for unknown indication
     Route: 048
  39. ZOFRAN [Concomitant]
     Active Substance: ONDANSETRON HYDROCHLORIDE
     Indication: Product used for unknown indication
     Dosage: BED TIME
     Route: 048
  40. DESYREL [Concomitant]
     Active Substance: TRAZODONE HYDROCHLORIDE
     Indication: Product used for unknown indication
     Dosage: BED TIME
     Route: 048
  41. PHENERGAN [Concomitant]
     Active Substance: PROMETHAZINE HYDROCHLORIDE
     Indication: Product used for unknown indication
     Dosage: Q4H  PRN
     Route: 048
  42. SENOKOT [Concomitant]
     Active Substance: SENNOSIDES
     Indication: Product used for unknown indication
     Dosage: BED TIME
     Route: 048

REACTIONS (5)
  - Cholangiocarcinoma [Fatal]
  - Hepatic cancer metastatic [Fatal]
  - Oedema [Not Recovered/Not Resolved]
  - Fluid retention [Not Recovered/Not Resolved]
  - Renal disorder [Unknown]
